FAERS Safety Report 22636831 (Version 1)
Quarter: 2023Q2

REPORT INFORMATION
  Report Type: Spontaneous
  Country: GB (occurrence: GB)
  Receive Date: 20230626
  Receipt Date: 20230626
  Transmission Date: 20230721
  Serious: Yes (Other)
  Sender: FDA-Public Use
  Company Number: None

PATIENT
  Sex: Female

DRUGS (94)
  1. APIXABAN [Suspect]
     Active Substance: APIXABAN
     Indication: Cerebrovascular accident prophylaxis
     Dosage: 10 MILLIGRAM, QD
     Dates: start: 20230207, end: 20230207
  2. BISOPROLOL [Suspect]
     Active Substance: BISOPROLOL
     Indication: Cerebrovascular accident prophylaxis
     Dosage: 10 MILLIGRAM, QD
  3. CANDESARTAN [Suspect]
     Active Substance: CANDESARTAN
     Indication: Product used for unknown indication
     Dates: start: 20220401, end: 20230316
  4. CETIRIZINE HYDROCHLORIDE [Suspect]
     Active Substance: CETIRIZINE HYDROCHLORIDE
     Indication: Product used for unknown indication
     Dosage: 10 MILLIGRAM, QD
  5. DIGOXIN [Suspect]
     Active Substance: DIGOXIN
     Indication: Cerebrovascular accident prophylaxis
     Dosage: 62.5 MICROGRAM, QD
     Route: 065
  6. ESOMEPRAZOLE [Suspect]
     Active Substance: ESOMEPRAZOLE
     Indication: Reflux laryngitis
     Dosage: 40 MILLIGRAM (AFTER MEAL);
  7. FELODIPINE [Suspect]
     Active Substance: FELODIPINE
     Indication: Blood pressure abnormal
     Dates: start: 20230106
  8. ISOSORBIDE MONONITRATE [Suspect]
     Active Substance: ISOSORBIDE MONONITRATE
     Indication: Product used for unknown indication
  9. ISOSORBIDE DINITRATE [Suspect]
     Active Substance: ISOSORBIDE DINITRATE
     Indication: Product used for unknown indication
     Dosage: 50 MILLIGRAM, QD
     Route: 048
  10. LANSOPRAZOLE [Suspect]
     Active Substance: LANSOPRAZOLE
     Indication: Atrial fibrillation
     Dosage: 30 MILLIGRAM, 1 DOSE PER 1 D
  11. LEVOTHYROXINE [Suspect]
     Active Substance: LEVOTHYROXINE
     Indication: Product used for unknown indication
  12. NAPROXEN [Suspect]
     Active Substance: NAPROXEN
     Indication: Product used for unknown indication
  13. SIMVASTATIN [Suspect]
     Active Substance: SIMVASTATIN
     Indication: Product used for unknown indication
  14. ASTRAZENECA COVID-19 VACCINE [Suspect]
     Active Substance: AZD-1222
     Indication: Product used for unknown indication
  15. HYDROCHLOROTHIAZIDE [Suspect]
     Active Substance: HYDROCHLOROTHIAZIDE
     Indication: Product used for unknown indication
     Dosage: 2 MILLIGRAM, QD (MORNING)
  16. IMDUR [Suspect]
     Active Substance: ISOSORBIDE MONONITRATE
     Indication: Product used for unknown indication
  17. DAPAGLIFLOZIN [Suspect]
     Active Substance: DAPAGLIFLOZIN
     Indication: Ill-defined disorder
     Dates: start: 20220725
  18. LINAGLIPTIN [Suspect]
     Active Substance: LINAGLIPTIN
     Indication: Product used for unknown indication
     Dosage: 5 MILLIGRAM, QD
     Route: 065
  19. FOSFOMYCIN [Concomitant]
     Active Substance: FOSFOMYCIN
     Dates: start: 20230227, end: 20230228
  20. SIMVASTATIN [Concomitant]
     Active Substance: SIMVASTATIN
     Dates: start: 20221123
  21. AMITRIPTYLINE HYDROCHLORIDE [Concomitant]
     Active Substance: AMITRIPTYLINE HYDROCHLORIDE
     Dates: start: 20221123
  22. SPIRONOLACTONE [Concomitant]
     Active Substance: SPIRONOLACTONE
     Dates: start: 20230105
  23. FEXOFENADINE [Concomitant]
     Active Substance: FEXOFENADINE HYDROCHLORIDE
     Dates: start: 20230317
  24. LACTULOSE [Concomitant]
     Active Substance: LACTULOSE
  25. NITROGLYCERIN [Concomitant]
     Active Substance: NITROGLYCERIN
  26. SITAGLIPTIN [Concomitant]
     Active Substance: SITAGLIPTIN
  27. DOXAZOSIN [Concomitant]
     Active Substance: DOXAZOSIN MESYLATE
  28. DOCUSATE SODIUM [Concomitant]
     Active Substance: DOCUSATE SODIUM
  29. PREDNISOLONE [Concomitant]
     Active Substance: PREDNISOLONE
  30. CHLORAMPHENICOL [Concomitant]
     Active Substance: CHLORAMPHENICOL
     Dates: start: 20230318
  31. AMLODIPINE [Concomitant]
     Active Substance: AMLODIPINE BESYLATE
  32. ACETAMINOPHEN [Concomitant]
     Active Substance: ACETAMINOPHEN
     Dates: start: 20230111, end: 20230123
  33. CITALOPRAM [Concomitant]
     Active Substance: CITALOPRAM HYDROBROMIDE
     Dates: start: 20230318
  34. WARFARIN SODIUM [Concomitant]
     Active Substance: WARFARIN SODIUM
  35. ATORVASTATIN [Concomitant]
     Active Substance: ATORVASTATIN
  36. OLANZAPINE [Concomitant]
     Active Substance: OLANZAPINE
  37. EDOXABAN [Concomitant]
     Active Substance: EDOXABAN
     Dates: start: 20221205
  38. ROSUVASTATIN [Concomitant]
     Active Substance: ROSUVASTATIN
     Dates: start: 20210317, end: 20230217
  39. ACETAMINOPHEN\CODEINE PHOSPHATE [Concomitant]
     Active Substance: ACETAMINOPHEN\CODEINE PHOSPHATE
  40. MINERAL OIL [Concomitant]
     Active Substance: MINERAL OIL
  41. LANSOPRAZOLE [Concomitant]
     Active Substance: LANSOPRAZOLE
  42. INSULIN GLARGINE [Concomitant]
     Active Substance: INSULIN GLARGINE
     Dates: start: 20211013, end: 20230106
  43. ALBUTEROL SULFATE [Concomitant]
     Active Substance: ALBUTEROL SULFATE
     Dates: start: 20220818
  44. TOZINAMERAN [Concomitant]
     Active Substance: TOZINAMERAN
  45. FLUTICASONE PROPIONATE [Concomitant]
     Active Substance: FLUTICASONE PROPIONATE
  46. GAVISCON [Concomitant]
     Active Substance: ALUMINUM HYDROXIDE\MAGNESIUM CARBONATE
  47. POLYETHYLENE GLYCOL 3350\POTASSIUM CHLORIDE\SODIUM BICARBONATE\SODIUM [Concomitant]
     Active Substance: POLYETHYLENE GLYCOL 3350\POTASSIUM CHLORIDE\SODIUM BICARBONATE\SODIUM CHLORIDE
  48. LOSARTAN [Concomitant]
     Active Substance: LOSARTAN
     Dosage: UNK UNK, QD
     Dates: start: 20210628
  49. MOVELAT [Concomitant]
  50. SILDENAFIL [Concomitant]
     Active Substance: SILDENAFIL
  51. SENNA [Concomitant]
     Active Substance: SENNA LEAF\SENNOSIDES\SENNOSIDES A AND B
     Dosage: UNK
     Dates: start: 20211217
  52. SILDENAFIL [Concomitant]
     Active Substance: SILDENAFIL
  53. ESTRIOL [Concomitant]
     Active Substance: ESTRIOL
     Dates: start: 20221123
  54. BENDROFLUMETHIAZIDE [Concomitant]
     Active Substance: BENDROFLUMETHIAZIDE
     Dates: start: 20221111
  55. OMEPRAZOLE [Concomitant]
     Active Substance: OMEPRAZOLE
     Dates: start: 20221123
  56. GABAPENTIN [Concomitant]
     Active Substance: GABAPENTIN
  57. SENNA [Concomitant]
     Active Substance: SENNA LEAF\SENNOSIDES\SENNOSIDES A AND B
     Dates: start: 20211217
  58. BUMETANIDE [Concomitant]
     Active Substance: BUMETANIDE
     Dates: start: 20220525, end: 20230217
  59. GLICLAZIDE [Concomitant]
     Active Substance: GLICLAZIDE
  60. METFORMIN [Concomitant]
     Active Substance: METFORMIN HYDROCHLORIDE
     Indication: Diabetes mellitus
  61. ASPIRIN [Concomitant]
     Active Substance: ASPIRIN
     Dates: start: 20230126
  62. BISOPROLOL [Concomitant]
     Active Substance: BISOPROLOL
     Dates: start: 20221205
  63. SOTALOL [Concomitant]
     Active Substance: SOTALOL
  64. RAMIPRIL [Concomitant]
     Active Substance: RAMIPRIL
  65. LINAGLIPTIN [Suspect]
     Active Substance: LINAGLIPTIN
  66. BENDROFLUMETHIAZIDE [Concomitant]
     Active Substance: BENDROFLUMETHIAZIDE
     Dates: start: 20221123
  67. SPIRONOLACTONE [Concomitant]
     Active Substance: SPIRONOLACTONE
  68. DAPAGLIFLOZIN [Suspect]
     Active Substance: DAPAGLIFLOZIN
     Dates: start: 20220512
  69. BISOPROLOL [Concomitant]
     Active Substance: BISOPROLOL
     Dates: start: 20230301
  70. RAMIPRIL [Concomitant]
     Active Substance: RAMIPRIL
     Dates: start: 20221205
  71. SIMVASTATIN [Concomitant]
     Active Substance: SIMVASTATIN
  72. LACTULOSE [Concomitant]
     Active Substance: LACTULOSE
     Dates: start: 20221104
  73. OMEPRAZOLE [Concomitant]
     Active Substance: OMEPRAZOLE
     Dates: start: 20221205
  74. LANSOPRAZOLE [Concomitant]
     Active Substance: LANSOPRAZOLE
  75. METFORMIN [Concomitant]
     Active Substance: METFORMIN HYDROCHLORIDE
     Indication: Diabetes mellitus
  76. SITAGLIPTIN [Concomitant]
     Active Substance: SITAGLIPTIN
  77. DAPAGLIFLOZIN [Suspect]
     Active Substance: DAPAGLIFLOZIN
     Indication: Diabetes mellitus
  78. ASTRAZENECA COVID-19 VACCINE [Suspect]
     Active Substance: AZD-1222
     Indication: Adverse drug reaction
  79. ASTRAZENECA COVID-19 VACCINE [Suspect]
     Active Substance: AZD-1222
     Indication: COVID-19 immunisation
     Dates: start: 20211221, end: 20211221
  80. ASTRAZENECA COVID-19 VACCINE [Suspect]
     Active Substance: AZD-1222
     Indication: Product used for unknown indication
     Dates: start: 20210312
  81. ASTRAZENECA COVID-19 VACCINE [Suspect]
     Active Substance: AZD-1222
     Indication: Product used for unknown indication
     Dates: start: 20210312, end: 20210312
  82. ASTRAZENECA COVID-19 VACCINE [Suspect]
     Active Substance: AZD-1222
     Indication: Product used for unknown indication
     Dates: start: 20210601, end: 20220512
  83. ASTRAZENECA COVID-19 VACCINE [Suspect]
     Active Substance: AZD-1222
     Indication: Product used for unknown indication
     Dates: start: 20221214
  84. ASTRAZENECA COVID-19 VACCINE [Suspect]
     Active Substance: AZD-1222
     Indication: Product used for unknown indication
     Dates: start: 20210517
  85. ASTRAZENECA COVID-19 VACCINE [Suspect]
     Active Substance: AZD-1222
     Indication: Product used for unknown indication
     Dates: start: 20210622, end: 20210622
  86. ASTRAZENECA COVID-19 VACCINE [Suspect]
     Active Substance: AZD-1222
     Indication: Product used for unknown indication
     Dates: start: 20210625
  87. CANDESARTAN [Suspect]
     Active Substance: CANDESARTAN
     Indication: Product used for unknown indication
     Dates: start: 20230222
  88. ISOSORBIDE MONONITRATE [Suspect]
     Active Substance: ISOSORBIDE MONONITRATE
     Indication: Product used for unknown indication
     Dosage: 50 MILLIGRAM, QD
  89. BISOPROLOL [Suspect]
     Active Substance: BISOPROLOL
     Indication: Cerebrovascular accident prophylaxis
     Dosage: 5 MILLIGRAM, QD
     Dates: start: 20180207, end: 20180207
  90. LEVOTHYROXINE [Suspect]
     Active Substance: LEVOTHYROXINE
     Indication: Product used for unknown indication
  91. DAPAGLIFLOZIN [Suspect]
     Active Substance: DAPAGLIFLOZIN
     Indication: Ill-defined disorder
     Dosage: 10 MILLIGRAM, QD
     Dates: start: 20230217
  92. INSULIN GLARGINE [Concomitant]
     Active Substance: INSULIN GLARGINE
     Dates: start: 20211003, end: 20230106
  93. FELODIPINE [Suspect]
     Active Substance: FELODIPINE
     Indication: Blood pressure abnormal
  94. LOSARTAN [Concomitant]
     Active Substance: LOSARTAN

REACTIONS (66)
  - Off label use [Recovered/Resolved with Sequelae]
  - Back pain [Recovered/Resolved]
  - Malaise [Unknown]
  - Hyperhidrosis [Unknown]
  - Tinnitus [Not Recovered/Not Resolved]
  - Angioedema [Recovered/Resolved]
  - Pruritus [Recovering/Resolving]
  - Tachycardia [Unknown]
  - Muscular weakness [Unknown]
  - Anxiety [Not Recovered/Not Resolved]
  - Visual impairment [Recovering/Resolving]
  - Fatigue [Recovered/Resolved]
  - Pericarditis [Not Recovered/Not Resolved]
  - Abdominal discomfort [Recovered/Resolved]
  - Amnesia [Not Recovered/Not Resolved]
  - Myocardial infarction [Recovered/Resolved]
  - Intentional product use issue [Unknown]
  - Alopecia [Recovered/Resolved]
  - Abdominal pain upper [Unknown]
  - Blood glucose increased [Unknown]
  - Pain [Recovered/Resolved]
  - Pyrexia [Unknown]
  - Memory impairment [Recovering/Resolving]
  - Drug abuse [Unknown]
  - Anosmia [Recovered/Resolved]
  - Heart rate increased [Unknown]
  - COVID-19 [Recovered/Resolved]
  - Dehydration [Unknown]
  - Diplopia [Recovering/Resolving]
  - Lip swelling [Recovering/Resolving]
  - Dry skin [Not Recovered/Not Resolved]
  - Vomiting [Recovered/Resolved]
  - Cardiospasm [Not Recovered/Not Resolved]
  - Ventricular tachycardia [Not Recovered/Not Resolved]
  - Subarachnoid haemorrhage [Recovered/Resolved]
  - Dyspnoea [Unknown]
  - Eye pruritus [Recovered/Resolved]
  - Transient ischaemic attack [Recovered/Resolved]
  - Hallucination [Recovered/Resolved]
  - Feeling abnormal [Unknown]
  - Dizziness [Recovered/Resolved]
  - Immunisation [Recovered/Resolved]
  - Palmoplantar keratoderma [Not Recovered/Not Resolved]
  - Nausea [Not Recovered/Not Resolved]
  - Blindness [Not Recovered/Not Resolved]
  - Facial pain [Recovered/Resolved]
  - Pruritus genital [Recovered/Resolved]
  - Cognitive disorder [Recovered/Resolved]
  - Vasculitis [Not Recovered/Not Resolved]
  - Headache [Not Recovered/Not Resolved]
  - Carotid artery occlusion [Recovered/Resolved]
  - Tension headache [Not Recovered/Not Resolved]
  - Intentional product misuse [Unknown]
  - Muscle twitching [Unknown]
  - Chest pain [Unknown]
  - Sleep terror [Recovered/Resolved]
  - Diarrhoea [Recovered/Resolved]
  - Arthralgia [Recovered/Resolved]
  - Pain of skin [Recovered/Resolved]
  - Disturbance in attention [Recovered/Resolved]
  - Peripheral swelling [Recovered/Resolved]
  - Atrial tachycardia [Not Recovered/Not Resolved]
  - Rash papular [Recovering/Resolving]
  - Insomnia [Unknown]
  - Palpitations [Unknown]
  - Migraine [Not Recovered/Not Resolved]

NARRATIVE: CASE EVENT DATE: 20180207
